FAERS Safety Report 10723689 (Version 2)
Quarter: 2015Q1

REPORT INFORMATION
  Report Type: Spontaneous
  Country: US (occurrence: None)
  Receive Date: 20150114
  Receipt Date: 20150123
  Transmission Date: 20150721
  Serious: Yes (Other)
  Sender: FDA-Public Use
  Company Number: 2014SMT00142

PATIENT
  Age: 66 Year
  Sex: Female
  Weight: 68 kg

DRUGS (3)
  1. REGRANEX [Suspect]
     Active Substance: BECAPLERMIN
     Indication: ULCER
     Route: 061
     Dates: start: 20141209, end: 20141222
  2. TOPICORT CREAM [Concomitant]
  3. DOXYCYCLINE. [Concomitant]
     Active Substance: DOXYCYCLINE

REACTIONS (7)
  - Wound complication [None]
  - Off label use [None]
  - Pain [None]
  - Stasis dermatitis [None]
  - Condition aggravated [None]
  - Inflammation [None]
  - Skin ulcer [None]

NARRATIVE: CASE EVENT DATE: 20141223
